FAERS Safety Report 13911636 (Version 1)
Quarter: 2017Q3

REPORT INFORMATION
  Report Type: Spontaneous
  Country: US (occurrence: US)
  Receive Date: 20170828
  Receipt Date: 20170828
  Transmission Date: 20171127
  Serious: No
  Sender: FDA-Public Use
  Company Number: US-ROCHE-1143304

PATIENT
  Sex: Female
  Weight: 63.6 kg

DRUGS (8)
  1. CRANBERRY. [Concomitant]
     Active Substance: CRANBERRY
  2. NUTROPIN AQ [Suspect]
     Active Substance: SOMATROPIN
     Indication: GROWTH HORMONE DEFICIENCY
     Dosage: 0.006 MG/KG/WEEK (DOSE PER INJECTION:0.08 ML)
     Route: 058
     Dates: start: 19990412
  3. VITAMIN E [Concomitant]
     Active Substance: .ALPHA.-TOCOPHEROL
  4. SYNTHROID [Concomitant]
     Active Substance: LEVOTHYROXINE SODIUM
     Route: 065
  5. IMITREX STATDOSE [Concomitant]
     Active Substance: SUMATRIPTAN SUCCINATE
  6. SYNTHROID [Concomitant]
     Active Substance: LEVOTHYROXINE SODIUM
     Route: 065
  7. MEGAVITAMINS [Concomitant]
  8. IRON [Concomitant]
     Active Substance: IRON

REACTIONS (3)
  - Fatigue [Unknown]
  - Irritability [Unknown]
  - Vestibular disorder [Unknown]
